FAERS Safety Report 21601201 (Version 2)
Quarter: 2023Q2

REPORT INFORMATION
  Report Type: Other
  Country: DE (occurrence: None)
  Receive Date: 20221116
  Receipt Date: 20230522
  Transmission Date: 20230722
  Serious: No
  Sender: FDA-Public Use
  Company Number: DE-ROCHE-2330016

PATIENT
  Age: 60 Year
  Sex: Male

DRUGS (4)
  1. OCREVUS [Suspect]
     Active Substance: OCRELIZUMAB
     Indication: Primary progressive multiple sclerosis
     Dosage: NEXT DOSE: 07/JUL/2021, 14/JUL/2022 + 21/JUL/2022, 300 MG I.V. EACH TIME
     Route: 042
     Dates: start: 20180515
  2. COMIRNATY [Suspect]
     Active Substance: TOZINAMERAN
     Indication: COVID-19 immunisation
     Dosage: COVID 19 VACCINATION
     Route: 065
     Dates: start: 20210414
  3. COMIRNATY [Suspect]
     Active Substance: TOZINAMERAN
     Route: 065
     Dates: start: 20210526
  4. FENEBRUTINIB [Suspect]
     Active Substance: FENEBRUTINIB
     Indication: Primary progressive multiple sclerosis
     Route: 048
     Dates: start: 20220629

REACTIONS (7)
  - Drug ineffective [Unknown]
  - Fatigue [Recovered/Resolved]
  - Apathy [Recovered/Resolved]
  - Dizziness [Unknown]
  - Nausea [Unknown]
  - COVID-19 [Recovered/Resolved]
  - Gait disturbance [Recovered/Resolved]

NARRATIVE: CASE EVENT DATE: 20190425
